FAERS Safety Report 6753384-3 (Version None)
Quarter: 2010Q2

REPORT INFORMATION
  Report Type: 
  Country: None (occurrence: None)
  Receive Date: 20100603
  Receipt Date: 20100527
  Transmission Date: 20101027
  Serious: Yes (Other)
  Sender: FDA-Public Use
  Company Number: US-SANOFI-AVENTIS-2010SA031247

PATIENT
  Sex: Male

DRUGS (4)
  1. AMBIEN [Suspect]
     Indication: INSOMNIA
     Dosage: TAKING UP TO FOUR ZOLPIDEM, ZOLPIDEM CR, OR ZOLPIDEM GENERIC TABLETS AT ONE TIME
     Route: 048
     Dates: start: 20070101
  2. AMBIEN CR [Suspect]
     Indication: INSOMNIA
     Dosage: TAKING UP TO FOUR ZOLPIDEM, ZOLPIDEM CR, OR ZOLPIDEM GENERIC TABLETS AT ONE TIME
     Route: 048
     Dates: start: 20070101
  3. ZOLPIDEM TARTRATE [Suspect]
     Indication: INSOMNIA
     Dosage: TAKING UP TO FOUR ZOLPIDEM, ZOLPIDEM CR, OR ZOLPIDEM GENERIC TABLETS AT ONE TIME
     Route: 048
     Dates: start: 20070101
  4. CELEXA [Concomitant]
     Indication: ANXIETY

REACTIONS (8)
  - DRUG ABUSE [None]
  - DRUG DEPENDENCE [None]
  - DRUG WITHDRAWAL SYNDROME [None]
  - FEELING ABNORMAL [None]
  - REBOUND EFFECT [None]
  - ROAD TRAFFIC ACCIDENT [None]
  - SOMNAMBULISM [None]
  - TACHYPHRENIA [None]
